FAERS Safety Report 22352599 (Version 3)
Quarter: 2023Q2

REPORT INFORMATION
  Report Type: Spontaneous
  Country: US (occurrence: US)
  Receive Date: 20230523
  Receipt Date: 20230623
  Transmission Date: 20230722
  Serious: No
  Sender: FDA-Public Use
  Company Number: US-AMGEN-USASP2023087257

PATIENT
  Sex: Female

DRUGS (1)
  1. AMJEVITA [Suspect]
     Active Substance: ADALIMUMAB-ATTO
     Indication: Hidradenitis
     Dosage: 40 MILLIGRAM
     Route: 065

REACTIONS (1)
  - Device difficult to use [Unknown]
